FAERS Safety Report 17022281 (Version 2)
Quarter: 2019Q4

REPORT INFORMATION
  Report Type: Report from Study
  Country: PK (occurrence: PK)
  Receive Date: 20191112
  Receipt Date: 20191115
  Transmission Date: 20200122
  Serious: Yes (Death)
  Sender: FDA-Public Use
  Company Number: NVSC2019PK033072

PATIENT
  Age: 64 Year
  Sex: Female
  Weight: 71 kg

DRUGS (1)
  1. GLIVEC [Suspect]
     Active Substance: IMATINIB MESYLATE
     Indication: CHRONIC MYELOID LEUKAEMIA
     Dosage: 6 DF, QD
     Route: 048
     Dates: start: 20191009

REACTIONS (3)
  - Platelet count increased [Unknown]
  - Death [Fatal]
  - Haemoglobin decreased [Unknown]

NARRATIVE: CASE EVENT DATE: 20191009
